FAERS Safety Report 21774547 (Version 3)
Quarter: 2023Q1

REPORT INFORMATION
  Report Type: Report from Study
  Country: PA (occurrence: PA)
  Receive Date: 20221224
  Receipt Date: 20230216
  Transmission Date: 20230417
  Serious: Yes (Death, Other)
  Sender: FDA-Public Use
  Company Number: PA-002147023-NVSC2022PA296411

PATIENT
  Age: 58 Year
  Sex: Female

DRUGS (2)
  1. KISQALI [Suspect]
     Active Substance: RIBOCICLIB
     Indication: Breast cancer metastatic
     Dosage: 600 MG, QD (3 TABLET, QD)
     Route: 048
     Dates: start: 20221209
  2. ANASTROZOLE [Suspect]
     Active Substance: ANASTROZOLE
     Indication: Product used for unknown indication
     Dosage: UNK
     Route: 065

REACTIONS (5)
  - Death [Fatal]
  - Metastases to liver [Unknown]
  - Metastasis [Unknown]
  - Metastases to bone [Unknown]
  - Pain [Unknown]

NARRATIVE: CASE EVENT DATE: 20230118
